FAERS Safety Report 5064293-2 (Version None)
Quarter: 2006Q3

REPORT INFORMATION
  Report Type: 
  Country: None (occurrence: None)
  Receive Date: 20060728
  Receipt Date: 20060630
  Transmission Date: 20061208
  Serious: Yes (Hospitalization)
  Sender: FDA-Public Use
  Company Number: JP-SP-2006-01630

PATIENT
  Age: 64 Year
  Sex: Female

DRUGS (2)
  1. IMMUCYST [Suspect]
     Indication: BLADDER CANCER
     Route: 043
     Dates: start: 20060613
  2. IMMUCYST [Suspect]
     Route: 043
     Dates: start: 20060613

REACTIONS (2)
  - BLADDER TAMPONADE [None]
  - HAEMATURIA [None]
